FAERS Safety Report 4570514-2 (Version None)
Quarter: 2005Q1

REPORT INFORMATION
  Report Type: 
  Country: None (occurrence: None)
  Receive Date: 20050204
  Receipt Date: 20050131
  Transmission Date: 20050727
  Serious: Yes (Other)
  Sender: FDA-Public Use
  Company Number: PHBS2005CH01669

PATIENT
  Sex: Female

DRUGS (8)
  1. LESCOL [Suspect]
     Indication: HYPERCHOLESTEROLAEMIA
     Dosage: 80 MG, QD
     Route: 048
     Dates: start: 20041201, end: 20041201
  2. SAROTEN [Concomitant]
     Dosage: 25 MG, QD
     Route: 048
  3. LORAMET [Concomitant]
  4. SPASMO-CANULASE [Concomitant]
  5. CALCIMAGON-D3 [Concomitant]
  6. SYMFONA N [Concomitant]
  7. STRUCTUM [Concomitant]
  8. CARDAXEN [Concomitant]

REACTIONS (7)
  - BACK PAIN [None]
  - BLOOD CREATINE PHOSPHOKINASE INCREASED [None]
  - BONE PAIN [None]
  - MUSCLE RIGIDITY [None]
  - MUSCULOSKELETAL STIFFNESS [None]
  - MYALGIA [None]
  - TENDON DISORDER [None]
